FAERS Safety Report 8888191 (Version 3)
Quarter: 2013Q4

REPORT INFORMATION
  Report Type: Report from Study
  Country: BR (occurrence: BR)
  Receive Date: 20121106
  Receipt Date: 20131127
  Transmission Date: 20140711
  Serious: Yes (Hospitalization)
  Sender: FDA-Public Use
  Company Number: BR-US-EMD SERONO, INC.-7171252

PATIENT
  Age: 61 Year
  Sex: Female

DRUGS (7)
  1. REBIF [Suspect]
     Indication: RELAPSING-REMITTING MULTIPLE SCLEROSIS
     Route: 058
     Dates: start: 20041122
  2. VASOPRIL                           /00574902/ [Concomitant]
     Indication: HYPERTENSION
  3. AMLODIPINE BESYLATE [Concomitant]
     Indication: HYPERTENSION
  4. NATRILIX                           /00340101/ [Concomitant]
     Indication: HYPERTENSION
  5. CLOPIDOGREL [Concomitant]
     Indication: HYPERTENSION
  6. SOMALGIN                           /00009201/ [Concomitant]
     Indication: HYPERTENSION
  7. LIPITOR [Concomitant]
     Indication: HYPERTENSION

REACTIONS (4)
  - Fall [Recovered/Resolved]
  - Head injury [Recovered/Resolved]
  - Balance disorder [Recovered/Resolved]
  - Muscular weakness [Recovering/Resolving]
